FAERS Safety Report 19694318 (Version 2)
Quarter: 2021Q3

REPORT INFORMATION
  Report Type: Spontaneous
  Country: PL (occurrence: PL)
  Receive Date: 20210813
  Receipt Date: 20210826
  Transmission Date: 20211014
  Serious: No
  Sender: FDA-Public Use
  Company Number: PL-BEH-2021132477

PATIENT
  Age: 19 Year
  Sex: Female
  Weight: 63 kg

DRUGS (13)
  1. RIASTAP [Suspect]
     Active Substance: FIBRINOGEN HUMAN
     Dosage: 3 GRAM, SINGLE
     Route: 042
     Dates: start: 20210628
  2. RIASTAP [Suspect]
     Active Substance: FIBRINOGEN HUMAN
     Dosage: 3 GRAM, SINGLE
     Route: 042
     Dates: start: 20210517
  3. RIASTAP [Suspect]
     Active Substance: FIBRINOGEN HUMAN
     Dosage: 4 GRAM, QW INSTEAD OF TWICE A WEEK (EVERY 3?4 D)
     Route: 042
  4. RIASTAP [Suspect]
     Active Substance: FIBRINOGEN HUMAN
     Indication: HYPOFIBRINOGENAEMIA
     Dosage: 3 GRAM, QMT
     Route: 042
  5. RIASTAP [Suspect]
     Active Substance: FIBRINOGEN HUMAN
     Dosage: 1 GRAM
     Route: 065
  6. RIASTAP [Suspect]
     Active Substance: FIBRINOGEN HUMAN
     Dosage: 3 GRAM, SINGLE
     Route: 042
     Dates: start: 20210617
  7. RIASTAP [Suspect]
     Active Substance: FIBRINOGEN HUMAN
     Dosage: 3 GRAM, SINGLE
     Route: 042
     Dates: start: 20210624
  8. RIASTAP [Suspect]
     Active Substance: FIBRINOGEN HUMAN
     Dosage: 3 GRAM, SINGLE
     Route: 042
     Dates: start: 20210527
  9. RIASTAP [Suspect]
     Active Substance: FIBRINOGEN HUMAN
     Dosage: 3 GRAM, SINGLE
     Route: 042
     Dates: start: 20210614
  10. RIASTAP [Suspect]
     Active Substance: FIBRINOGEN HUMAN
     Dosage: 3 GRAM, SINGLE
     Route: 042
     Dates: start: 20210712
  11. RIASTAP [Suspect]
     Active Substance: FIBRINOGEN HUMAN
     Dosage: 3 GRAM, SINGLE
     Route: 042
     Dates: start: 20210610
  12. RIASTAP [Suspect]
     Active Substance: FIBRINOGEN HUMAN
     Dosage: 3 GRAM, SINGLE
     Route: 042
     Dates: start: 20210513
  13. RIASTAP [Suspect]
     Active Substance: FIBRINOGEN HUMAN
     Dosage: UNK, 19TH WEEK OF PREGNANCY
     Route: 065

REACTIONS (5)
  - Maternal exposure during pregnancy [Unknown]
  - Treatment noncompliance [Unknown]
  - Blood fibrinogen abnormal [Unknown]
  - Poor venous access [Unknown]
  - Maternal exposure before pregnancy [Unknown]
